FAERS Safety Report 16438583 (Version 2)
Quarter: 2019Q3

REPORT INFORMATION
  Report Type: Spontaneous
  Country: JP (occurrence: JP)
  Receive Date: 20190617
  Receipt Date: 20190809
  Transmission Date: 20191004
  Serious: Yes (Hospitalization, Other)
  Sender: FDA-Public Use
  Company Number: JP-009507513-1906JPN000141J

PATIENT
  Age: 68 Year
  Sex: Male
  Weight: 43 kg

DRUGS (4)
  1. PEMETREXED DISODIUM [Suspect]
     Active Substance: PEMETREXED DISODIUM
     Indication: NON-SMALL CELL LUNG CANCER
     Dosage: 730 MILLIGRAM, EVERY 4 WEEKS
     Route: 041
     Dates: start: 20190313, end: 20190409
  2. CISPLATIN. [Suspect]
     Active Substance: CISPLATIN
     Indication: NON-SMALL CELL LUNG CANCER
     Dosage: 110 MILLIGRAM, EVERY 4 WEEKS
     Route: 041
     Dates: start: 20190313, end: 20190313
  3. KEYTRUDA [Suspect]
     Active Substance: PEMBROLIZUMAB
     Indication: NON-SMALL CELL LUNG CANCER
     Dosage: 200 MILLIGRAM, EVERY 4 WEEKS
     Route: 041
     Dates: start: 20190313, end: 20190409
  4. CISPLATIN. [Suspect]
     Active Substance: CISPLATIN
     Dosage: 70 MILLIGRAM, EVERY 4 WEEKS
     Route: 041
     Dates: start: 20190409, end: 20190409

REACTIONS (4)
  - Immune-mediated enterocolitis [Not Recovered/Not Resolved]
  - Malignant neoplasm progression [Unknown]
  - Diarrhoea [Recovered/Resolved]
  - Off label use [Unknown]

NARRATIVE: CASE EVENT DATE: 2019
